FAERS Safety Report 6445532-X (Version None)
Quarter: 2009Q4

REPORT INFORMATION
  Report Type: 
  Country: None (occurrence: None)
  Receive Date: 20091118
  Receipt Date: 20091109
  Transmission Date: 20100525
  Serious: Yes (Hospitalization)
  Sender: FDA-Public Use
  Company Number: UA-B.I. PHARMACEUTICALS,INC./RIDGEFIELD-2009-AP-00313AP

PATIENT
  Age: 61 Year
  Sex: Female

DRUGS (3)
  1. MOVALIS [Suspect]
     Indication: OSTEOARTHRITIS
     Dosage: 1.5 ML
     Route: 030
     Dates: start: 20080805
  2. MILGAMMA [Concomitant]
  3. ALFLUTOP [Concomitant]

REACTIONS (3)
  - HYPERAEMIA [None]
  - PRURITUS [None]
  - URTICARIA [None]
